FAERS Safety Report 7887956-X (Version None)
Quarter: 2011Q4

REPORT INFORMATION
  Report Type: 
  Country: None (occurrence: None)
  Receive Date: 20111103
  Receipt Date: 20111021
  Transmission Date: 20120403
  Serious: Yes (Hospitalization, Other)
  Sender: FDA-Public Use
  Company Number: US-ELI_LILLY_AND_COMPANY-US201108000323

PATIENT
  Age: 64 Year
  Sex: Female

DRUGS (2)
  1. FORTEO [Suspect]
     Indication: OSTEOPOROSIS
     Dosage: UNK, QD
     Dates: start: 20110501
  2. FORTEO [Suspect]
     Dosage: UNK, QD

REACTIONS (3)
  - DRUG DOSE OMISSION [None]
  - CARDIAC FAILURE CONGESTIVE [None]
  - PHARYNGEAL OEDEMA [None]
